FAERS Safety Report 11529989 (Version 1)
Quarter: 2015Q3

REPORT INFORMATION
  Report Type: Spontaneous
  Country: CA (occurrence: CA)
  Receive Date: 20150921
  Receipt Date: 20150921
  Transmission Date: 20151125
  Serious: Yes (Other)
  Sender: FDA-Public Use
  Company Number: CA-BAYER-2015-419959

PATIENT
  Age: 68 Year
  Sex: Male
  Weight: 90.8 kg

DRUGS (1)
  1. GADOVIST [Suspect]
     Active Substance: GADOBUTROL
     Indication: NUCLEAR MAGNETIC RESONANCE IMAGING
     Dosage: 9 ML, ONCE
     Route: 042
     Dates: start: 20150908, end: 20150908

REACTIONS (2)
  - Loss of consciousness [Recovered/Resolved]
  - Vomiting [Recovered/Resolved]
